FAERS Safety Report 6775190-6 (Version None)
Quarter: 2010Q2

REPORT INFORMATION
  Report Type: 
  Country: None (occurrence: None)
  Receive Date: 20100520
  Receipt Date: 20090506
  Transmission Date: 20101027
  Serious: Yes (Other)
  Sender: FDA-Public Use
  Company Number: 2008059723

PATIENT
  Age: 50 Year
  Sex: Female
  Weight: 79 kg

DRUGS (12)
  1. PROVERA [Suspect]
     Indication: HORMONE REPLACEMENT THERAPY
     Dosage: 5 MG, ORAL
     Route: 048
     Dates: start: 20060207, end: 20070101
  2. PROVERA [Suspect]
     Indication: MENOPAUSE
     Dosage: 5 MG, ORAL
     Route: 048
     Dates: start: 20060207, end: 20070101
  3. PREMPHASE (PREMARIN;CYCRIN 14/14) [Suspect]
     Indication: HORMONE REPLACEMENT THERAPY
     Dosage: 0.625-2.5 MG
     Dates: start: 20040819, end: 20060101
  4. PREMPHASE (PREMARIN;CYCRIN 14/14) [Suspect]
     Indication: MENOPAUSE
     Dosage: 0.625-2.5 MG
     Dates: start: 20040819, end: 20060101
  5. FEMHRT [Suspect]
     Indication: HORMONE REPLACEMENT THERAPY
     Dosage: 1 / 5MG
     Dates: start: 20050128, end: 20050307
  6. FEMHRT [Suspect]
     Indication: MENOPAUSE
     Dosage: 1 / 5MG
     Dates: start: 20050128, end: 20050307
  7. ESTRADIOL [Suspect]
     Indication: HORMONE REPLACEMENT THERAPY
     Dosage: 0.1 MG
     Dates: start: 20060101, end: 20060101
  8. ESTRADIOL [Suspect]
     Indication: MENOPAUSE
     Dosage: 0.1 MG
     Dates: start: 20060101, end: 20060101
  9. PREMPRO [Suspect]
     Indication: HORMONE REPLACEMENT THERAPY
     Dosage: 0.625 MG
     Dates: end: 20060301
  10. PREMPRO [Suspect]
     Indication: MENOPAUSE
     Dosage: 0.625 MG
     Dates: end: 20060301
  11. MEDROXYPROGESTERONE [Suspect]
     Indication: HORMONE REPLACEMENT THERAPY
     Dosage: 5 MG
     Dates: start: 20060207, end: 20070101
  12. IBUPROFEN [Concomitant]

REACTIONS (1)
  - BREAST CANCER [None]
